FAERS Safety Report 16354353 (Version 2)
Quarter: 2020Q3

REPORT INFORMATION
  Report Type: Spontaneous
  Country: AU (occurrence: AU)
  Receive Date: 20190524
  Receipt Date: 20200807
  Transmission Date: 20201102
  Serious: Yes (Death)
  Sender: FDA-Public Use
  Company Number: AU-009507513-1701AUS013665

PATIENT
  Age: 46 Year
  Sex: Male

DRUGS (2)
  1. KEYTRUDA [Suspect]
     Active Substance: PEMBROLIZUMAB
     Indication: ADRENAL NEOPLASM
  2. KEYTRUDA [Suspect]
     Active Substance: PEMBROLIZUMAB
     Indication: MALIGNANT MELANOMA STAGE IV
     Dosage: UNK

REACTIONS (4)
  - Product use issue [Unknown]
  - Malignant neoplasm progression [Fatal]
  - Weight decreased [Unknown]
  - Drug ineffective for unapproved indication [Unknown]
